FAERS Safety Report 4906842-8 (Version None)
Quarter: 2006Q1

REPORT INFORMATION
  Report Type: 
  Country: None (occurrence: None)
  Receive Date: 20060207
  Receipt Date: 20060124
  Transmission Date: 20060701
  Serious: Yes (Hospitalization)
  Sender: FDA-Public Use
  Company Number: URSO-2006-001

PATIENT
  Age: 68 Year
  Sex: Female

DRUGS (6)
  1. URSODESOXYCHOLIC ACID TABLETS [Suspect]
     Indication: BILIARY CIRRHOSIS PRIMARY
     Dosage: SEE IMAGE
     Route: 048
     Dates: start: 20001120, end: 20001206
  2. URSODESOXYCHOLIC ACID TABLETS [Suspect]
     Indication: BILIARY CIRRHOSIS PRIMARY
     Dosage: SEE IMAGE
     Route: 048
     Dates: start: 20001207
  3. FAMOTIDINE [Concomitant]
  4. MUCOSTA (REBAMIPIDE) [Concomitant]
  5. ALLOID G (SODIUM ALGINATE) [Concomitant]
  6. MAALOX (ALUMINIUM HYDROXIDE-MAGNESIUM HYDROXIDE) [Concomitant]

REACTIONS (3)
  - HAEMOPTYSIS [None]
  - PLATELET COUNT DECREASED [None]
  - PROTHROMBIN TIME PROLONGED [None]
